FAERS Safety Report 4424306-5 (Version None)
Quarter: 2004Q3

REPORT INFORMATION
  Report Type: 
  Country: None (occurrence: None)
  Receive Date: 20040805
  Receipt Date: 20040805
  Transmission Date: 20050211
  Serious: No
  Sender: FDA-Public Use
  Company Number: None

PATIENT
  Age: 75 Year
  Sex: Male
  Weight: 104.3273 kg

DRUGS (8)
  1. LANTUS [Suspect]
     Indication: DIABETES MELLITUS
     Dosage: 30 UNITS/DAY AT BEDTIME OVER I YEAR
  2. LANTUS [Suspect]
  3. NORVASC [Concomitant]
  4. GLYBURIDE [Concomitant]
  5. FUROSEMIDE [Concomitant]
  6. DICYCLOMINE [Concomitant]
  7. TIMED-RELEASE NIACIN [Concomitant]
  8. ASPIRIN [Concomitant]

REACTIONS (5)
  - ASTHENIA [None]
  - BLOOD GLUCOSE INCREASED [None]
  - DRUG INEFFECTIVE [None]
  - FEELING ABNORMAL [None]
  - PHARMACEUTICAL PRODUCT COMPLAINT [None]
